FAERS Safety Report 6604204-9 (Version None)
Quarter: 2010Q1

REPORT INFORMATION
  Report Type: 
  Country: None (occurrence: None)
  Receive Date: 20100226
  Receipt Date: 20090702
  Transmission Date: 20100710
  Serious: No
  Sender: FDA-Public Use
  Company Number: A0795242A

PATIENT
  Age: 33 Year
  Sex: Female

DRUGS (2)
  1. LAMICTAL CD [Suspect]
     Indication: BIPOLAR DISORDER
     Dates: start: 20090527
  2. CELEXA [Concomitant]

REACTIONS (3)
  - RASH PRURITIC [None]
  - SCRATCH [None]
  - SKIN EXFOLIATION [None]
